FAERS Safety Report 16959205 (Version 2)
Quarter: 2019Q4

REPORT INFORMATION
  Report Type: Spontaneous
  Country: JP (occurrence: JP)
  Receive Date: 20191024
  Receipt Date: 20191029
  Transmission Date: 20200122
  Serious: Yes (Hospitalization, Other)
  Sender: FDA-Public Use
  Company Number: JP-ABBVIE-19K-087-2918775-00

PATIENT

DRUGS (1)
  1. HUMIRA [Suspect]
     Active Substance: ADALIMUMAB
     Indication: CROHN^S DISEASE
     Route: 058
     Dates: start: 20190409

REACTIONS (3)
  - Intestinal resection [Unknown]
  - Abdominal pain [Recovered/Resolved]
  - Abdominal neoplasm [Unknown]

NARRATIVE: CASE EVENT DATE: 2019
